FAERS Safety Report 10624690 (Version 2)
Quarter: 2014Q4

REPORT INFORMATION
  Report Type: Report from Study
  Country: NL (occurrence: NL)
  Receive Date: 20141204
  Receipt Date: 20141204
  Transmission Date: 20150529
  Serious: Yes (Other)
  Sender: FDA-Public Use
  Company Number: NL-AMGEN-NLDSL2012086779

PATIENT
  Age: 84 Year
  Sex: Female

DRUGS (1)
  1. ARANESP [Suspect]
     Active Substance: DARBEPOETIN ALFA
     Indication: PRODUCT USED FOR UNKNOWN INDICATION
     Dosage: 0.6 ML (500MCG/ML), QWK
     Route: 065
     Dates: start: 20120711

REACTIONS (34)
  - Erythema [Unknown]
  - Feeling abnormal [Unknown]
  - Nasopharyngitis [Unknown]
  - Influenza [Recovered/Resolved]
  - Diarrhoea [Unknown]
  - Bronchial disorder [Unknown]
  - Fall [Unknown]
  - Wound [Unknown]
  - Limb discomfort [Unknown]
  - Vomiting [Unknown]
  - Oedema [Unknown]
  - Arthralgia [Unknown]
  - Tinnitus [Unknown]
  - Rash [Recovering/Resolving]
  - Dysphonia [Unknown]
  - Abdominal discomfort [Recovered/Resolved]
  - Dyspnoea [Unknown]
  - Haemoglobin decreased [Unknown]
  - Peripheral coldness [Unknown]
  - Muscle rigidity [Unknown]
  - Pyrexia [Recovered/Resolved]
  - Skin reaction [Unknown]
  - Pain in extremity [Unknown]
  - Headache [Unknown]
  - Pallor [Unknown]
  - Malaise [Unknown]
  - Pneumonia [Unknown]
  - Erysipelas [Unknown]
  - Drug ineffective [Unknown]
  - Fatigue [Unknown]
  - Influenza like illness [Unknown]
  - Cough [Unknown]
  - Productive cough [Unknown]
  - Vision blurred [Unknown]
